FAERS Safety Report 4575695-2 (Version None)
Quarter: 2005Q1

REPORT INFORMATION
  Report Type: 
  Country: None (occurrence: None)
  Receive Date: 20050128
  Receipt Date: 20050128
  Transmission Date: 20050727
  Serious: Yes (Other)
  Sender: FDA-Public Use
  Company Number: None

PATIENT
  Sex: Male
  Weight: 95.2554 kg

DRUGS (1)
  1. ZYVOX [Suspect]
     Indication: SEPSIS
     Dosage: 600 MG IV Q 12 H
     Route: 042
     Dates: start: 20050126, end: 20050126

REACTIONS (1)
  - VOMITING [None]
